FAERS Safety Report 13158309 (Version 1)
Quarter: 2017Q1

REPORT INFORMATION
  Report Type: Spontaneous
  Country: GB (occurrence: GB)
  Receive Date: 20170127
  Receipt Date: 20170127
  Transmission Date: 20170428
  Serious: Yes (Other)
  Sender: FDA-Public Use
  Company Number: GB-PFIZER INC-2017030830

PATIENT
  Age: 55 Year
  Sex: Female
  Weight: 89 kg

DRUGS (12)
  1. TILDIEM [Concomitant]
     Active Substance: DILTIAZEM HYDROCHLORIDE
     Dosage: 2 DF, 2X/DAY
     Dates: start: 19921215, end: 20161229
  2. AMITRIPTYLINE HYDROCHLORIDE. [Concomitant]
     Active Substance: AMITRIPTYLINE HYDROCHLORIDE
     Dosage: 1 -3 AT NIGHT.
     Dates: start: 20150305, end: 20161215
  3. CIPROFLOXACIN. [Suspect]
     Active Substance: CIPROFLOXACIN
     Dosage: UNK
     Dates: start: 20161230
  4. BENDROFLUMETHIAZIDE [Concomitant]
     Active Substance: BENDROFLUMETHIAZIDE
     Dosage: 1 DF, 1X/DAY
     Dates: start: 19930520, end: 20161229
  5. AMLODIPINE [Concomitant]
     Active Substance: AMLODIPINE BESYLATE
     Dosage: 1 DF, 1X/DAY
     Dates: start: 20061031, end: 20161229
  6. ATORVASTATIN [Concomitant]
     Active Substance: ATORVASTATIN
     Dosage: 1 DF, 1X/DAY
     Dates: start: 20160608, end: 20161215
  7. CLOPIDOGREL [Concomitant]
     Active Substance: CLOPIDOGREL BISULFATE
     Dosage: 1 DF, 1X/DAY
     Dates: start: 20160413, end: 20161229
  8. ASPIRIN. [Concomitant]
     Active Substance: ASPIRIN
     Dosage: 0.5 DF, 1X/DAY
     Dates: start: 20041215, end: 20161229
  9. ATENOLOL. [Concomitant]
     Active Substance: ATENOLOL
     Dosage: 1 DF, 1X/DAY
     Dates: start: 20070102, end: 20161229
  10. PERINDOPRIL ERBUMINE. [Concomitant]
     Active Substance: PERINDOPRIL ERBUMINE
     Dosage: 1 DF, 1X/DAY
     Dates: start: 19960902, end: 20161229
  11. MOMETASONE [Concomitant]
     Active Substance: MOMETASONE
     Dosage: 4 DF, 1X/DAY (TWO SPRAYS EACH NOSTRIL)
     Dates: start: 20150305, end: 20161229
  12. OMEPRAZOLE. [Concomitant]
     Active Substance: OMEPRAZOLE
     Dosage: TWO TO BE TAKEN EACH DAY AND THEN REDUCE TO ONE
     Dates: start: 20120709, end: 20161229

REACTIONS (1)
  - Candida infection [Recovered/Resolved]

NARRATIVE: CASE EVENT DATE: 20161230
